FAERS Safety Report 8022456-8 (Version None)
Quarter: 2011Q4

REPORT INFORMATION
  Report Type: 
  Country: None (occurrence: None)
  Receive Date: 20111229
  Receipt Date: 20111216
  Transmission Date: 20120403
  Serious: Yes (Death)
  Sender: FDA-Public Use
  Company Number: 1000024858

PATIENT
  Age: 89 Year
  Sex: Male

DRUGS (8)
  1. MAGMITT (MAGNESIUM OXIDE)(MAGNESIUM OXIDE) [Concomitant]
  2. PENCLUSIN (SENNOSIDE A+B)(SENNOSIDE A+B) [Concomitant]
  3. MEMANTINE HYDROCHLORIDE [Suspect]
     Indication: DEMENTIA ALZHEIMER'S TYPE
     Dosage: SEE IMAGE
     Route: 048
     Dates: start: 20110801, end: 20110811
  4. MEMANTINE HYDROCHLORIDE [Suspect]
     Indication: DEMENTIA ALZHEIMER'S TYPE
     Dosage: SEE IMAGE
     Route: 048
     Dates: start: 20110812, end: 20110818
  5. MEMANTINE HYDROCHLORIDE [Suspect]
     Indication: DEMENTIA ALZHEIMER'S TYPE
     Dosage: SEE IMAGE
     Route: 048
     Dates: start: 20110826, end: 20111015
  6. MEMANTINE HYDROCHLORIDE [Suspect]
     Indication: DEMENTIA ALZHEIMER'S TYPE
     Dosage: SEE IMAGE
     Route: 048
     Dates: start: 20110819, end: 20110825
  7. LIPO-OFF (SIMVASTATIN)(SIMVASTATIN) [Concomitant]
  8. ARICEPT D (DONEPEZIL HYDROCHLORIDE)(DONEPEZIL HYDROCHLORIDE) [Concomitant]

REACTIONS (1)
  - MYOCARDIAL INFARCTION [None]
